FAERS Safety Report 25732934 (Version 1)
Quarter: 2025Q3

REPORT INFORMATION
  Report Type: Spontaneous
  Country: US (occurrence: US)
  Receive Date: 20250828
  Receipt Date: 20250828
  Transmission Date: 20251020
  Serious: No
  Sender: ALEXION PHARMACEUTICALS
  Company Number: US-AstraZeneca-CH-00936581A

PATIENT
  Age: 24 Year
  Sex: Female

DRUGS (1)
  1. ULTOMIRIS [Suspect]
     Active Substance: RAVULIZUMAB-CWVZ
     Indication: Myasthenia gravis

REACTIONS (6)
  - Symptom recurrence [Not Recovered/Not Resolved]
  - Fatigue [Unknown]
  - Eyelid ptosis [Unknown]
  - Asthenia [Unknown]
  - Weight decreased [Unknown]
  - Therapeutic response shortened [Unknown]
